FAERS Safety Report 8919158 (Version 1)
Quarter: 2012Q4

REPORT INFORMATION
  Report Type: Spontaneous
  Country: CA (occurrence: None)
  Receive Date: 20121114
  Receipt Date: 20121114
  Transmission Date: 20130627
  Serious: Yes (Life-Threatening, Other)
  Sender: FDA-Public Use
  Company Number: FK201203301

PATIENT
  Age: 50 Year
  Sex: Female
  Weight: 53.7 kg

DRUGS (2)
  1. CALCIUM GLUCONATE [Suspect]
     Indication: PROPHYLAXIS
     Dosage: Over 20 minutes
     Route: 042
     Dates: start: 20121024, end: 20121024
  2. MAGNESIUM SULFATE [Suspect]
     Indication: PROPHYLAXIS
     Dosage: Over 20 minutes
     Route: 042
     Dates: start: 20121024, end: 20121024

REACTIONS (5)
  - Anaphylactic reaction [None]
  - Rhinitis [None]
  - Flushing [None]
  - Throat tightness [None]
  - Blood pressure decreased [None]
